FAERS Safety Report 4372000-1 (Version None)
Quarter: 2004Q2

REPORT INFORMATION
  Report Type: 
  Country: None (occurrence: None)
  Receive Date: 20040602
  Receipt Date: 20040602
  Transmission Date: 20050107
  Serious: Yes (Hospitalization)
  Sender: FDA-Public Use
  Company Number: None

PATIENT
  Sex: Female
  Weight: 80.2 kg

DRUGS (13)
  1. CELECOXIB 200 MG PHARMACIA/PFIZER [Suspect]
     Dosage: 400 MG TWICE PER ORAL
     Route: 048
     Dates: start: 20040511, end: 20040530
  2. BRAIN RADIATION THERAPY [Concomitant]
  3. TOPROL-XL [Concomitant]
  4. DILANTIN [Concomitant]
  5. DECADRON [Concomitant]
  6. LASIX [Concomitant]
  7. LANOXIN [Concomitant]
  8. FERROUS SULFATE TAB [Concomitant]
  9. PRINIVIL [Concomitant]
  10. CARDIZEM [Concomitant]
  11. K-DUR 10 [Concomitant]
  12. SYNTHROID [Concomitant]
  13. AMBIEN [Concomitant]

REACTIONS (8)
  - AGITATION [None]
  - COMMUNICATION DISORDER [None]
  - CONFUSIONAL STATE [None]
  - DEHYDRATION [None]
  - LETHARGY [None]
  - MENTAL STATUS CHANGES [None]
  - MYOCARDIAL INFARCTION [None]
  - RENAL FAILURE ACUTE [None]
